FAERS Safety Report 8739920 (Version 2)
Quarter: 2012Q4

REPORT INFORMATION
  Report Type: Report from Study
  Country: AU (occurrence: AU)
  Receive Date: 20120823
  Receipt Date: 20120918
  Transmission Date: 20130627
  Serious: Yes (Other)
  Sender: FDA-Public Use
  Company Number: AU-GILEAD-2012-0059765

PATIENT
  Age: 73 Year
  Sex: Female

DRUGS (7)
  1. AZTREONAM LYSINE [Suspect]
     Indication: BRONCHIECTASIS
     Dosage: 75 mg, TID
     Route: 055
     Dates: start: 20120720, end: 20120802
  2. TEMAZEPAM [Concomitant]
     Indication: INSOMNIA
     Dosage: 10 mg, QD
  3. EVISTA [Concomitant]
     Indication: OSTEOPOROSIS
     Dosage: 80 mg, QD
  4. ACIMAX [Concomitant]
     Indication: GASTROOESOPHAGEAL REFLUX DISEASE
     Dosage: 20 mg, QD
  5. SPIRIVA [Concomitant]
     Indication: BRONCHIECTASIS
     Dosage: 18 ?g, QD
     Route: 055
  6. AVAPRO HCT [Concomitant]
     Indication: HYPERTENSION
     Dosage: 312.5 mg, QD
     Route: 048
  7. NOTEN [Concomitant]
     Indication: HYPERTENSION
     Dosage: 80 mg, QD
     Route: 048

REACTIONS (1)
  - Asthma [Recovered/Resolved]
